FAERS Safety Report 18593973 (Version 1)
Quarter: 2020Q4

REPORT INFORMATION
  Report Type: Spontaneous
  Country: JP (occurrence: JP)
  Receive Date: 20201209
  Receipt Date: 20201209
  Transmission Date: 20210114
  Serious: Yes (Death)
  Sender: FDA-Public Use
  Company Number: JP-UCBSA-2020048106

PATIENT
  Age: 78 Year
  Sex: Male

DRUGS (5)
  1. NEUPRO [Suspect]
     Active Substance: ROTIGOTINE
     Indication: PARKINSON^S DISEASE
     Dosage: 2 MG
     Route: 062
  2. DOPASTON [Suspect]
     Active Substance: LEVODOPA
     Dosage: UNK
     Route: 048
     Dates: start: 20201111, end: 20201116
  3. NEUPRO [Suspect]
     Active Substance: ROTIGOTINE
     Dosage: 8 MG
     Route: 062
     Dates: end: 202011
  4. NEUPRO [Suspect]
     Active Substance: ROTIGOTINE
     Dosage: UNK
     Route: 062
     Dates: start: 20201111, end: 20201116
  5. DOPASTON [Suspect]
     Active Substance: LEVODOPA
     Indication: PRODUCT USED FOR UNKNOWN INDICATION
     Dosage: UNK
     Route: 048
     Dates: end: 202011

REACTIONS (3)
  - Depressed level of consciousness [Fatal]
  - Pneumonia aspiration [Fatal]
  - Dysphagia [Not Recovered/Not Resolved]
